FAERS Safety Report 25702355 (Version 1)
Quarter: 2025Q3

REPORT INFORMATION
  Report Type: Spontaneous
  Country: CA (occurrence: CA)
  Receive Date: 20250819
  Receipt Date: 20250819
  Transmission Date: 20251020
  Serious: Yes (Hospitalization)
  Sender: MYLAN
  Company Number: CA-MYLANLABS-2025M1069922

PATIENT
  Age: 81 Year
  Sex: Female
  Weight: 64 kg

DRUGS (4)
  1. MIRTAZAPINE [Suspect]
     Active Substance: MIRTAZAPINE
     Indication: Decreased appetite
     Dosage: 15 MILLIGRAM, QD (1 EVERY 1 DAYS)
  2. MIRTAZAPINE [Suspect]
     Active Substance: MIRTAZAPINE
     Indication: Anxiety
     Dosage: 15 MILLIGRAM, QD (1 EVERY 1 DAYS)
     Route: 048
  3. MIRTAZAPINE [Suspect]
     Active Substance: MIRTAZAPINE
     Dosage: 15 MILLIGRAM, QD (1 EVERY 1 DAYS)
     Route: 048
  4. MIRTAZAPINE [Suspect]
     Active Substance: MIRTAZAPINE
     Dosage: 15 MILLIGRAM, QD (1 EVERY 1 DAYS)

REACTIONS (6)
  - Nausea [Recovering/Resolving]
  - Back pain [Recovering/Resolving]
  - Hyponatraemia [Recovering/Resolving]
  - Blood sodium abnormal [Recovering/Resolving]
  - Disease progression [Recovering/Resolving]
  - Hypophagia [Recovering/Resolving]
